FAERS Safety Report 7404177-5 (Version None)
Quarter: 2011Q2

REPORT INFORMATION
  Report Type: 
  Country: None (occurrence: None)
  Receive Date: 20110408
  Receipt Date: 20110316
  Transmission Date: 20111010
  Serious: No
  Sender: FDA-Public Use
  Company Number: US-B.I. PHARMACEUTICALS,INC./RIDGEFIELD-2011-BP-08490BP

PATIENT
  Sex: Female

DRUGS (8)
  1. ZETIA [Concomitant]
     Route: 048
  2. FUROSEMIDE [Concomitant]
     Indication: HYPOTHYROIDISM
     Dosage: 20 MG
     Route: 048
  3. SOTALOL [Concomitant]
     Dosage: 80 MG
     Route: 048
  4. POTASSIUM [Concomitant]
     Indication: HYPOTHYROIDISM
     Dosage: 20 MEQ
     Route: 048
  5. SIMVASTATIN [Concomitant]
     Indication: BLOOD CHOLESTEROL INCREASED
     Dosage: 80 MG
     Route: 048
  6. COZAAR [Concomitant]
     Route: 048
  7. LEVOTHYROXINE [Concomitant]
     Indication: HYPOTHYROIDISM
     Dosage: 75 MCG
     Route: 048
  8. PRADAXA [Suspect]
     Indication: ATRIAL FIBRILLATION
     Dosage: 300 MG
     Route: 048
     Dates: start: 20110201

REACTIONS (1)
  - FATIGUE [None]
